FAERS Safety Report 6033789-9 (Version None)
Quarter: 2009Q1

REPORT INFORMATION
  Report Type: 
  Country: None (occurrence: None)
  Receive Date: 20090108
  Receipt Date: 20081223
  Transmission Date: 20090719
  Serious: No
  Sender: FDA-Public Use
  Company Number: 000120

PATIENT
  Age: 28 Year
  Sex: Female

DRUGS (6)
  1. GUAIMAX-D [Suspect]
  2. METHADONE HCL [Suspect]
  3. ETHANOL [Suspect]
  4. CHLORPHENIRAMINE MALEATE [Suspect]
  5. ERYTHROMYCIN [Suspect]
  6. PREDNISONE TAB [Concomitant]

REACTIONS (1)
  - DEATH [None]
